FAERS Safety Report 11418107 (Version 1)
Quarter: 2015Q3

REPORT INFORMATION
  Report Type: Spontaneous
  Country: US (occurrence: US)
  Receive Date: 20150825
  Receipt Date: 20150825
  Transmission Date: 20151125
  Serious: No
  Sender: FDA-Public Use
  Company Number: US-PURDUE-USA-2015-0123705

PATIENT
  Age: 64 Year
  Sex: Male
  Weight: 62.13 kg

DRUGS (8)
  1. HYSINGLA ER [Suspect]
     Active Substance: HYDROCODONE BITARTRATE
     Indication: BONE PAIN
  2. HYSINGLA ER [Suspect]
     Active Substance: HYDROCODONE BITARTRATE
     Indication: PAIN
  3. HYSINGLA ER [Suspect]
     Active Substance: HYDROCODONE BITARTRATE
     Indication: MULTIPLE SCLEROSIS
     Dosage: 30 MG, Q24H
     Route: 048
     Dates: start: 20150514, end: 20150520
  4. CREON [Concomitant]
     Active Substance: PANCRELIPASE AMYLASE\PANCRELIPASE LIPASE\PANCRELIPASE PROTEASE
     Indication: PANCREATITIS
     Route: 048
  5. HYSINGLA ER [Suspect]
     Active Substance: HYDROCODONE BITARTRATE
     Indication: MUSCLE SPASTICITY
  6. HYSINGLA ER [Suspect]
     Active Substance: HYDROCODONE BITARTRATE
     Indication: PHYSICAL DISABILITY
  7. HYSINGLA ER [Suspect]
     Active Substance: HYDROCODONE BITARTRATE
     Indication: MUSCLE SPASMS
  8. HYSINGLA ER [Suspect]
     Active Substance: HYDROCODONE BITARTRATE
     Indication: MYALGIA

REACTIONS (19)
  - Anxiety [Unknown]
  - Respiratory arrest [Unknown]
  - Somnolence [Unknown]
  - Heart rate increased [Unknown]
  - Hypoaesthesia oral [Unknown]
  - Fatigue [Unknown]
  - Drug effect increased [Unknown]
  - Pain [Not Recovered/Not Resolved]
  - Foreign body [Recovered/Resolved]
  - Hypopnoea [Unknown]
  - Dyspnoea [Unknown]
  - Palpitations [Unknown]
  - Tinnitus [Unknown]
  - Paraesthesia oral [Unknown]
  - Dysuria [Unknown]
  - Drug ineffective [Unknown]
  - Eye irritation [Unknown]
  - Inflammation [Unknown]
  - Local swelling [Unknown]

NARRATIVE: CASE EVENT DATE: 20150520
